FAERS Safety Report 8582725-X (Version None)
Quarter: 2012Q3

REPORT INFORMATION
  Report Type: 
  Country: None (occurrence: None)
  Receive Date: 20120809
  Receipt Date: 20120727
  Transmission Date: 20120928
  Serious: No
  Sender: FDA-Public Use
  Company Number: US-ASTRAZENECA-2012SE52016

PATIENT
  Age: 59 Year
  Sex: Female
  Weight: 86.2 kg

DRUGS (2)
  1. NEXIUM [Suspect]
     Indication: GASTROOESOPHAGEAL REFLUX DISEASE
     Route: 048
     Dates: start: 20120717
  2. PRILOSEC [Suspect]
     Indication: GASTROOESOPHAGEAL REFLUX DISEASE
     Dosage: DAILY
     Route: 048

REACTIONS (11)
  - FATIGUE [None]
  - DISTURBANCE IN ATTENTION [None]
  - INAPPROPRIATE SCHEDULE OF DRUG ADMINISTRATION [None]
  - SOMNOLENCE [None]
  - WEIGHT INCREASED [None]
  - DISORIENTATION [None]
  - DRUG INTOLERANCE [None]
  - CHEST PAIN [None]
  - HIATUS HERNIA [None]
  - HEADACHE [None]
  - DIARRHOEA [None]
